FAERS Safety Report 4342831-2 (Version None)
Quarter: 2004Q2

REPORT INFORMATION
  Report Type: 
  Country: None (occurrence: None)
  Receive Date: 20040416
  Receipt Date: 20040412
  Transmission Date: 20050107
  Serious: No
  Sender: FDA-Public Use
  Company Number: 2004207830US

PATIENT
  Age: 35 Year
  Sex: Female
  Weight: 77.1 kg

DRUGS (2)
  1. BEXTRA [Suspect]
     Indication: INTERVERTEBRAL DISC DISORDER
     Dosage: 10 MG, QD,
     Dates: start: 20030901, end: 20040206
  2. CORTISONE (CORTISONE) [Concomitant]

REACTIONS (1)
  - STEVENS-JOHNSON SYNDROME [None]
